FAERS Safety Report 4639059-5 (Version None)
Quarter: 2005Q2

REPORT INFORMATION
  Report Type: 
  Country: None (occurrence: None)
  Receive Date: 20050419
  Receipt Date: 20050408
  Transmission Date: 20051028
  Serious: Yes (Life-Threatening)
  Sender: FDA-Public Use
  Company Number: ES-ROCHE-401656

PATIENT
  Sex: Female

DRUGS (2)
  1. COPEGUS [Suspect]
     Route: 048
     Dates: start: 20040611
  2. PEGASYS [Suspect]
     Route: 058
     Dates: start: 20040611

REACTIONS (1)
  - PANCYTOPENIA [None]
